FAERS Safety Report 4710135-1 (Version None)
Quarter: 2005Q2

REPORT INFORMATION
  Report Type: 
  Country: None (occurrence: None)
  Receive Date: 20050629
  Receipt Date: 20050307
  Transmission Date: 20051028
  Serious: No
  Sender: FDA-Public Use
  Company Number: 05P-163-0293077-00

PATIENT
  Age: 79 Year
  Sex: Female
  Weight: 74.8435 kg

DRUGS (6)
  1. HUMIRA [Suspect]
     Indication: RHEUMATOID ARTHRITIS
     Dosage: 40 MG, 1 IN 2 WK, SUBCUTANEOUS
     Route: 058
     Dates: start: 20050217
  2. ATORVASTATIN CALCIUM [Concomitant]
  3. RHEUMETREX [Concomitant]
  4. SERTRALINE HYDROCHLORIDE [Concomitant]
  5. LANSOPRAZOLE [Concomitant]
  6. HYDROXYCHLOROQUINE PHOSPHATE [Concomitant]

REACTIONS (2)
  - CONTUSION [None]
  - INJECTION SITE ERYTHEMA [None]
